FAERS Safety Report 7221281-5 (Version None)
Quarter: 2011Q1

REPORT INFORMATION
  Report Type: 
  Country: None (occurrence: None)
  Receive Date: 20110112
  Receipt Date: 20101009
  Transmission Date: 20110831
  Serious: No
  Sender: FDA-Public Use
  Company Number: US-BAYER-201022673BCC

PATIENT
  Sex: Male

DRUGS (1)
  1. ALEVE [Suspect]
     Indication: NASOPHARYNGITIS
     Dosage: 440 MG, ONCE
     Route: 048
     Dates: start: 20101009

REACTIONS (4)
  - LIP SWELLING [None]
  - RASH [None]
  - HYPERSENSITIVITY [None]
  - PARAESTHESIA ORAL [None]
